FAERS Safety Report 21876639 (Version 1)
Quarter: 2023Q1

REPORT INFORMATION
  Report Type: Spontaneous
  Country: IT (occurrence: IT)
  Receive Date: 20230118
  Receipt Date: 20230118
  Transmission Date: 20230417
  Serious: Yes (Hospitalization, Other)
  Sender: FDA-Public Use
  Company Number: IT-STRIDES ARCOLAB LIMITED-2023SP000684

PATIENT
  Age: 72 Year
  Sex: Male

DRUGS (3)
  1. PREDNISOLONE [Suspect]
     Active Substance: PREDNISOLONE
     Indication: Dermatomyositis
     Dosage: 1 MILLIGRAM/KILOGRAM
     Route: 065
  2. PREDNISOLONE [Suspect]
     Active Substance: PREDNISOLONE
     Dosage: UNK, GRADUALLY TAPERED
     Route: 065
  3. AZATHIOPRINE [Suspect]
     Active Substance: AZATHIOPRINE
     Indication: Dermatomyositis
     Dosage: 50 MILLIGRAM PER DAY
     Route: 065

REACTIONS (5)
  - Ascites [Unknown]
  - Hepatocellular carcinoma [Unknown]
  - Disease progression [Unknown]
  - Pneumonia aspiration [Unknown]
  - Off label use [Unknown]
